FAERS Safety Report 5295394-1 (Version None)
Quarter: 2007Q2

REPORT INFORMATION
  Report Type: 
  Country: None (occurrence: None)
  Receive Date: 20070406
  Receipt Date: 20070327
  Transmission Date: 20071010
  Serious: Yes (Life-Threatening, Other)
  Sender: FDA-Public Use
  Company Number: 2007US000693

PATIENT
  Sex: Female

DRUGS (1)
  1. FK506-OINTMENT  (TACROLIMUS ) OINTMENT [Suspect]
     Indication: PSORIASIS

REACTIONS (1)
  - SPINAL CORD NEOPLASM [None]
